FAERS Safety Report 9993671 (Version 1)
Quarter: 2014Q1

REPORT INFORMATION
  Report Type: Spontaneous
  Country: US (occurrence: US)
  Receive Date: 20140310
  Receipt Date: 20140310
  Transmission Date: 20141002
  Serious: Yes (Other)
  Sender: FDA-Public Use
  Company Number: PHHY2014US026883

PATIENT
  Age: 31 Year
  Sex: Female

DRUGS (4)
  1. PREDNISONE [Suspect]
     Indication: POLYARTERITIS NODOSA
     Dosage: 7.5 MG AT DELIVERY
  2. AZATHIOPRINE [Suspect]
     Indication: POLYARTERITIS NODOSA
     Dosage: 50 MG, UNK
  3. RITUXIMAB [Suspect]
     Indication: POLYARTERITIS NODOSA
  4. CYCLOPHOSPHAMIDE [Suspect]
     Indication: POLYARTERITIS NODOSA

REACTIONS (2)
  - Premature delivery [Unknown]
  - Maternal exposure during pregnancy [Recovered/Resolved]
